FAERS Safety Report 4981821-3 (Version None)
Quarter: 2006Q2

REPORT INFORMATION
  Report Type: 
  Country: None (occurrence: None)
  Receive Date: 20060425
  Receipt Date: 20060412
  Transmission Date: 20061013
  Serious: Yes (Other)
  Sender: FDA-Public Use
  Company Number: GR-GLAXOSMITHKLINE-B0421141A

PATIENT
  Age: 72 Year
  Sex: Female

DRUGS (1)
  1. AVANDAMET [Suspect]
     Dosage: 3TAB PER DAY
     Route: 048
     Dates: start: 20051230, end: 20060315

REACTIONS (4)
  - ANOREXIA [None]
  - DEPRESSION [None]
  - HAEMATOCRIT DECREASED [None]
  - WEIGHT DECREASED [None]
